FAERS Safety Report 21347514 (Version 1)
Quarter: 2022Q3

REPORT INFORMATION
  Report Type: Spontaneous
  Country: PY (occurrence: PY)
  Receive Date: 20220919
  Receipt Date: 20220919
  Transmission Date: 20221027
  Serious: Yes (Death)
  Sender: FDA-Public Use
  Company Number: PY-NOVOPROD-954238

PATIENT
  Sex: Male

DRUGS (1)
  1. ISOPHANE INSULIN [Suspect]
     Active Substance: INSULIN NOS
     Indication: Product used for unknown indication
     Dosage: UNK

REACTIONS (1)
  - Death [Fatal]
